FAERS Safety Report 21665132 (Version 1)
Quarter: 2022Q4

REPORT INFORMATION
  Report Type: Spontaneous
  Country: US (occurrence: US)
  Receive Date: 20221130
  Receipt Date: 20221130
  Transmission Date: 20230113
  Serious: Yes (Death)
  Sender: FDA-Public Use
  Company Number: US-AMNEAL PHARMACEUTICALS-2022-AMRX-03646

PATIENT
  Sex: Female

DRUGS (3)
  1. RYTARY [Suspect]
     Active Substance: CARBIDOPA\LEVODOPA
     Indication: Product used for unknown indication
     Dosage: 3 CAPSULES, 4 /DAY
     Route: 048
  2. RYTARY [Suspect]
     Active Substance: CARBIDOPA\LEVODOPA
     Dosage: 2 CAPS 4 TIMES DAILY AT 7AM, 11AM, 3PM, AND 7PM(WITH 195MG).
     Route: 048
  3. RYTARY [Suspect]
     Active Substance: CARBIDOPA\LEVODOPA
     Dosage: 48.75-195MG 1 CAPSULE FOUR TIMES A DAY AT 7AM, 11AM, 3PM, AND 7PM(WITH 145MG).
     Route: 048

REACTIONS (1)
  - Adverse event [Fatal]
